FAERS Safety Report 7002678-5 (Version None)
Quarter: 2010Q3

REPORT INFORMATION
  Report Type: 
  Country: None (occurrence: None)
  Receive Date: 20100920
  Receipt Date: 20070530
  Transmission Date: 20110219
  Serious: Yes (Other)
  Sender: FDA-Public Use
  Company Number: US-ASTRAZENECA-2006UW25425

PATIENT
  Age: 15572 Day
  Sex: Male
  Weight: 135.6 kg

DRUGS (10)
  1. SEROQUEL [Suspect]
     Indication: SLEEP DISORDER
     Dosage: 300 MG
     Route: 048
     Dates: start: 19970101
  2. SEROQUEL [Suspect]
     Dosage: 100MG-300MG DISPENSED
     Route: 048
     Dates: start: 20020131
  3. DEPAKOTE [Concomitant]
     Dosage: 500MG DISPENSED
     Dates: start: 20020131
  4. PAXIL [Concomitant]
     Dosage: 30MG-40MG
     Dates: start: 20020225
  5. KLONOPIN [Concomitant]
     Dosage: 0.5MG-1MG TWICE A DAY
     Dates: start: 19920311
  6. LISINOPRIL [Concomitant]
     Dosage: 5MG DISPENSED
     Dates: start: 20061120
  7. TRILEPTAL [Concomitant]
     Dosage: 300MG-800MG DISPENSED
     Dates: start: 20030318
  8. HYDROCODONE BITARTRATE AND ACETAMINOPHEN [Concomitant]
     Dosage: 5/500MG-7.5/500MG DISPENSED
     Dates: start: 20011221
  9. METFORMIN [Concomitant]
     Indication: TYPE 2 DIABETES MELLITUS
     Dosage: 500MG DISPENSED
     Dates: start: 20051031
  10. JANUVIA [Concomitant]
     Dates: start: 20070316

REACTIONS (4)
  - DIABETES MELLITUS [None]
  - DIABETES MELLITUS INADEQUATE CONTROL [None]
  - PANCREATITIS [None]
  - TYPE 2 DIABETES MELLITUS [None]
